FAERS Safety Report 19597403 (Version 2)
Quarter: 2021Q3

REPORT INFORMATION
  Report Type: Spontaneous
  Country: CA (occurrence: CA)
  Receive Date: 20210722
  Receipt Date: 20210728
  Transmission Date: 20211014
  Serious: Yes (Life-Threatening, Hospitalization)
  Sender: FDA-Public Use
  Company Number: CA-TEVA-2021-CA-1933608

PATIENT
  Age: 10 Year
  Sex: Male

DRUGS (5)
  1. DESMOPRESSIN [Concomitant]
     Active Substance: DESMOPRESSIN
     Indication: DIABETES INSIPIDUS
     Dosage: FOR CONFIRMING THE DIAGNOSIS OF CDI 10 MICROGRAM OF INTRANASAL DDAVP WAS GIVEN
     Route: 045
  2. IBUPROFEN. [Suspect]
     Active Substance: IBUPROFEN
     Indication: FRACTURE PAIN
     Dosage: 2400 MILLIGRAM DAILY; AS NEEDED
     Route: 065
  3. HYDROMORPHONE [Suspect]
     Active Substance: HYDROMORPHONE
     Indication: FRACTURE PAIN
     Dosage: 6 MILLIGRAM DAILY; AS NEEDED
     Route: 065
  4. DESMOPRESSIN [Concomitant]
     Active Substance: DESMOPRESSIN
     Indication: DIABETES INSIPIDUS
     Dosage: 6.4 MILLIGRAM DAILY;
     Route: 048
  5. HYDROCORTISONE. [Concomitant]
     Active Substance: HYDROCORTISONE
     Indication: HYPONATRAEMIA
     Dosage: 12 MILLIGRAM DAILY; 6.3 MG/M2/DAY
     Route: 048

REACTIONS (2)
  - Seizure [Unknown]
  - Hyponatraemia [Recovered/Resolved]
